FAERS Safety Report 7894325-5 (Version None)
Quarter: 2011Q4

REPORT INFORMATION
  Report Type: 
  Country: None (occurrence: None)
  Receive Date: 20111104
  Receipt Date: 20111027
  Transmission Date: 20120403
  Serious: Yes (Other)
  Sender: FDA-Public Use
  Company Number: GB-MERCK-1110GBR00060

PATIENT
  Age: 5 Year
  Sex: Male
  Weight: 16 kg

DRUGS (4)
  1. CROMOLYN SODIUM [Concomitant]
     Route: 065
  2. SINEMET [Suspect]
     Indication: MUSCLE SPASTICITY
     Route: 048
     Dates: start: 20100701, end: 20111001
  3. AZITHROMYCIN [Concomitant]
     Route: 065
  4. CETIRIZINE HYDROCHLORIDE [Concomitant]
     Route: 065

REACTIONS (5)
  - PEPTIC ULCER [None]
  - GASTRIC ULCER [None]
  - OFF LABEL USE [None]
  - GASTROINTESTINAL HAEMORRHAGE [None]
  - DUODENAL ULCER [None]
